FAERS Safety Report 7725142-4 (Version None)
Quarter: 2011Q3

REPORT INFORMATION
  Report Type: 
  Country: None (occurrence: None)
  Receive Date: 20110901
  Receipt Date: 20110829
  Transmission Date: 20111222
  Serious: Yes (Hospitalization)
  Sender: FDA-Public Use
  Company Number: FR-ALLERGAN-1110378US

PATIENT
  Age: 66 Year
  Sex: Male

DRUGS (4)
  1. COMBIGAN [Suspect]
     Indication: PRODUCT USED FOR UNKNOWN INDICATION
     Dosage: UNK
     Route: 047
     Dates: start: 20060701
  2. DIAMOX SRC [Concomitant]
     Dosage: 3 DF, QD
  3. LUMIGAN [Concomitant]
     Indication: PRODUCT USED FOR UNKNOWN INDICATION
     Dosage: 1 GTT, QPM
     Route: 047
  4. COSOPT [Concomitant]
     Indication: PRODUCT USED FOR UNKNOWN INDICATION
     Dosage: UNK
     Dates: start: 20110701

REACTIONS (4)
  - CONJUNCTIVAL ULCER [None]
  - UVEITIS [None]
  - NECROTISING SCLERITIS [None]
  - EPISCLERITIS [None]
